FAERS Safety Report 12195845 (Version 3)
Quarter: 2016Q3

REPORT INFORMATION
  Report Type: Spontaneous
  Country: US (occurrence: US)
  Receive Date: 20160321
  Receipt Date: 20160804
  Transmission Date: 20161109
  Serious: No
  Sender: FDA-Public Use
  Company Number: US-PFIZER INC-2016112010

PATIENT
  Age: 43 Year
  Sex: Female

DRUGS (2)
  1. MORPHINE SULFATE. [Suspect]
     Active Substance: MORPHINE SULFATE
     Indication: MASTECTOMY
     Dosage: UNK
     Dates: start: 19911121, end: 19911126
  2. MORPHINE SULFATE. [Suspect]
     Active Substance: MORPHINE SULFATE
     Indication: NEURALGIA

REACTIONS (3)
  - Somnolence [Unknown]
  - Urticaria [Unknown]
  - Drug hypersensitivity [Unknown]
